FAERS Safety Report 8750342 (Version 2)
Quarter: 2012Q4

REPORT INFORMATION
  Report Type: 
  Country: US (occurrence: None)
  Receive Date: 20120809
  Receipt Date: 20120827
  Transmission Date: 20130627
  Serious: Yes (Hospitalization)
  Sender: FDA-Public Use
  Company Number: 2012GMK002256

PATIENT
  Age: 18 Month
  Sex: Female

DRUGS (3)
  1. OXCARBAZEPINE [Suspect]
     Indication: COMPLEX PARTIAL SEIZURES
     Dosage: 14 MG/KG, QD
  2. OXCARBAZEPINE [Suspect]
     Dosage: 14 MG/KG, QD
  3. LEVETIRACETAM (LEVETIRACETAM) [Concomitant]

REACTIONS (8)
  - Infantile spasms [None]
  - Irritability [None]
  - Hypotonia [None]
  - Postictal paralysis [None]
  - Abasia [None]
  - Aphasia [None]
  - Cognitive disorder [None]
  - Activities of daily living impaired [None]
